FAERS Safety Report 19111155 (Version 1)
Quarter: 2021Q2

REPORT INFORMATION
  Report Type: Spontaneous
  Country: US (occurrence: US)
  Receive Date: 20210408
  Receipt Date: 20210408
  Transmission Date: 20210717
  Serious: Yes (Life-Threatening, Hospitalization)
  Sender: FDA-Public Use
  Company Number: None

PATIENT
  Age: 74 Year
  Sex: Male

DRUGS (1)
  1. YESCARTA [Suspect]
     Active Substance: AXICABTAGENE CILOLEUCEL
     Indication: DIFFUSE LARGE B-CELL LYMPHOMA
     Dates: start: 20210125, end: 20210125

REACTIONS (7)
  - Neurotoxicity [None]
  - Seizure [None]
  - Pyrexia [None]
  - Aphasia [None]
  - Cytokine release syndrome [None]
  - Unresponsive to stimuli [None]
  - Electroencephalogram abnormal [None]

NARRATIVE: CASE EVENT DATE: 20210128
